FAERS Safety Report 11888403 (Version 1)
Quarter: 2016Q1

REPORT INFORMATION
  Report Type: Spontaneous
  Country: US (occurrence: US)
  Receive Date: 20160105
  Receipt Date: 20160105
  Transmission Date: 20160526
  Serious: Yes (Other)
  Sender: FDA-Public Use
  Company Number: US-ACI HEALTHCARE LIMITED-1046130

PATIENT
  Weight: .79 kg

DRUGS (2)
  1. BACLOFEN. [Concomitant]
     Active Substance: BACLOFEN
  2. GABAPENTIN. [Suspect]
     Active Substance: GABAPENTIN
     Indication: HYPERAESTHESIA
     Route: 065

REACTIONS (2)
  - Autonomic nervous system imbalance [Recovered/Resolved]
  - Drug withdrawal syndrome neonatal [Recovered/Resolved]
